FAERS Safety Report 18983205 (Version 1)
Quarter: 2021Q1

REPORT INFORMATION
  Report Type: Spontaneous
  Country: US (occurrence: US)
  Receive Date: 20210302
  Receipt Date: 20210302
  Transmission Date: 20210420
  Serious: Yes (Disabling, Other)
  Sender: FDA-Public Use
  Company Number: None

PATIENT
  Age: 96 Year
  Sex: Female
  Weight: 60.3 kg

DRUGS (3)
  1. DAILY MULTIVITAMIN [Concomitant]
     Active Substance: VITAMINS
  2. VITAMIN D3 [Suspect]
     Active Substance: CHOLECALCIFEROL
     Indication: HYPOVITAMINOSIS
     Dosage: ?          QUANTITY:12 CAPSULE(S);OTHER FREQUENCY:ONCE A WEEK;?
     Route: 048
     Dates: start: 20200101, end: 20200301
  3. THYROID MEDICATION [Concomitant]
     Active Substance: UNSPECIFIED INGREDIENT

REACTIONS (3)
  - Asthenia [None]
  - Pain in extremity [None]
  - Hypersensitivity [None]

NARRATIVE: CASE EVENT DATE: 20200101
